FAERS Safety Report 14449038 (Version 1)
Quarter: 2018Q1

REPORT INFORMATION
  Report Type: Report from Study
  Country: JP (occurrence: JP)
  Receive Date: 20180126
  Receipt Date: 20180126
  Transmission Date: 20180509
  Serious: Yes (Death, Other)
  Sender: FDA-Public Use
  Company Number: JP-GLAXOSMITHKLINE-JP2018JPN012065

PATIENT
  Age: 17 Year
  Sex: Female

DRUGS (1)
  1. EPOPROSTENOL SODIUM. [Suspect]
     Active Substance: EPOPROSTENOL SODIUM
     Indication: PULMONARY ARTERIAL HYPERTENSION
     Dosage: UNK
     Route: 042

REACTIONS (5)
  - Hyperthyroidism [Unknown]
  - Euthyroid sick syndrome [Unknown]
  - Basedow^s disease [Unknown]
  - Cardiac failure [Unknown]
  - Right ventricular failure [Fatal]
